FAERS Safety Report 6982793-2 (Version None)
Quarter: 2010Q3

REPORT INFORMATION
  Report Type: 
  Country: None (occurrence: None)
  Receive Date: 20100914
  Receipt Date: 20100415
  Transmission Date: 20110219
  Serious: No
  Sender: FDA-Public Use
  Company Number: US-PFIZER INC-2010048769

PATIENT
  Sex: Male
  Weight: 54.4 kg

DRUGS (3)
  1. LYRICA [Suspect]
     Indication: PAIN
     Dosage: 50 MG, 2X/DAY
     Dates: start: 20100414
  2. NEORAL [Concomitant]
     Indication: RENAL TRANSPLANT
     Dosage: 25 MG, 2X/DAY
  3. VERAPAMIL [Concomitant]
     Dosage: 120 MG, 2X/DAY

REACTIONS (3)
  - CONSTIPATION [None]
  - DIZZINESS [None]
  - SOMNOLENCE [None]
